FAERS Safety Report 5071577-0 (Version None)
Quarter: 2006Q3

REPORT INFORMATION
  Report Type: 
  Country: None (occurrence: None)
  Receive Date: 20060803
  Receipt Date: 20060803
  Transmission Date: 20061208
  Serious: Yes (Hospitalization)
  Sender: FDA-Public Use
  Company Number: None

PATIENT
  Age: 80 Year
  Sex: Male
  Weight: 54 kg

DRUGS (3)
  1. TYGECYCLINE 50 MG [Suspect]
     Indication: DECUBITUS ULCER
     Dosage: 50 MG DAILY IV
     Route: 042
     Dates: start: 20060501, end: 20060518
  2. LINEZOLID [Suspect]
     Indication: ENTEROCOCCAL INFECTION
     Dosage: 600 MG Q 12 H IV
     Route: 042
     Dates: start: 20060501, end: 20060518
  3. LINEZOLID [Suspect]
     Indication: SEPSIS
     Dosage: 600 MG Q 12 H IV
     Route: 042
     Dates: start: 20060501, end: 20060518

REACTIONS (1)
  - CLOSTRIDIAL INFECTION [None]
